FAERS Safety Report 7759607-6 (Version None)
Quarter: 2011Q3

REPORT INFORMATION
  Report Type: 
  Country: None (occurrence: None)
  Receive Date: 20110919
  Receipt Date: 20110912
  Transmission Date: 20111222
  Serious: Yes (Death)
  Sender: FDA-Public Use
  Company Number: JP-ROCHE-802314

PATIENT
  Sex: Male

DRUGS (6)
  1. MIRCERA [Suspect]
     Indication: NEPHROGENIC ANAEMIA
     Route: 042
     Dates: start: 20110801
  2. CARVEDILOL [Concomitant]
     Route: 048
  3. OLMESARTAN MEDOXOMIL [Concomitant]
     Route: 048
  4. CALBLOCK [Concomitant]
     Route: 048
  5. ADALAT [Concomitant]
     Route: 048
  6. CALCIUM CARBONATE [Concomitant]
     Route: 048

REACTIONS (2)
  - BRAIN STEM HAEMORRHAGE [None]
  - CEREBELLAR HAEMORRHAGE [None]
